FAERS Safety Report 24876006 (Version 2)
Quarter: 2025Q1

REPORT INFORMATION
  Report Type: Report from Study
  Country: US (occurrence: US)
  Receive Date: 20250123
  Receipt Date: 20250327
  Transmission Date: 20250409
  Serious: Yes (Hospitalization)
  Sender: BIOGEN
  Company Number: US-BIOGEN-2025BI01297454

PATIENT
  Age: 50 Year
  Sex: Female

DRUGS (3)
  1. VUMERITY [Suspect]
     Active Substance: DIROXIMEL FUMARATE
     Indication: Multiple sclerosis
     Route: 050
     Dates: start: 20241002
  2. VUMERITY [Suspect]
     Active Substance: DIROXIMEL FUMARATE
     Route: 050
     Dates: start: 20241021, end: 20241027
  3. VUMERITY [Suspect]
     Active Substance: DIROXIMEL FUMARATE
     Route: 050
     Dates: start: 20241028

REACTIONS (10)
  - Benign abdominal neoplasm [Not Recovered/Not Resolved]
  - Cholecystitis [Unknown]
  - Neurological procedural complication [Unknown]
  - Procedural pain [Unknown]
  - Facial pain [Not Recovered/Not Resolved]
  - Erythema [Not Recovered/Not Resolved]
  - Pruritus [Recovered/Resolved]
  - Vomiting [Recovered/Resolved]
  - Flushing [Unknown]
  - Urticaria [Unknown]

NARRATIVE: CASE EVENT DATE: 20250101
